FAERS Safety Report 5209578-1 (Version None)
Quarter: 2006Q4

REPORT INFORMATION
  Report Type: 
  Country: None (occurrence: None)
  Receive Date: 20061122
  Receipt Date: 20051118
  Transmission Date: 20070319
  Serious: Yes (Hospitalization, Other)
  Sender: FDA-Public Use
  Company Number: 2005158319

PATIENT
  Age: 43 Year
  Sex: Male
  Weight: 81.6475 kg

DRUGS (3)
  1. LIPITOR [Suspect]
     Indication: BLOOD CHOLESTEROL INCREASED
     Dosage: 10 MG (10 MG, 1 IN 1 D), ORAL
     Route: 048
     Dates: start: 20050901
  2. NEXIUM [Concomitant]
  3. ZANTAC [Concomitant]

REACTIONS (3)
  - ABNORMAL BEHAVIOUR [None]
  - BLOOD CHOLESTEROL INCREASED [None]
  - CHEST PAIN [None]
